FAERS Safety Report 25196600 (Version 2)
Quarter: 2025Q4

REPORT INFORMATION
  Report Type: Spontaneous
  Country: CA (occurrence: CA)
  Receive Date: 20250415
  Receipt Date: 20251015
  Transmission Date: 20260117
  Serious: Yes (Other)
  Sender: CELLTRION
  Company Number: CA-CELLTRION INC.-2024CA032871

PATIENT

DRUGS (1)
  1. INFLIXIMAB [Suspect]
     Active Substance: INFLIXIMAB
     Indication: Colitis ulcerative
     Dosage: 120 MG, Q1W (EXPIRY DATE: FE 2027)
     Route: 058
     Dates: start: 20241220

REACTIONS (3)
  - Haematochezia [Unknown]
  - Faecal calprotectin increased [Unknown]
  - Off label use [Unknown]

NARRATIVE: CASE EVENT DATE: 20241220
